FAERS Safety Report 8988631 (Version 3)
Quarter: 2013Q1

REPORT INFORMATION
  Report Type: Spontaneous
  Country: US (occurrence: None)
  Receive Date: 20121218
  Receipt Date: 20130228
  Transmission Date: 20140127
  Serious: Yes (Other)
  Sender: FDA-Public Use
  Company Number: AUR-APL-2012-05406

PATIENT
  Age: 59 Year
  Sex: Female

DRUGS (12)
  1. METFORMIN [Suspect]
     Indication: BLOOD GLUCOSE FLUCTUATION
  2. SIMVASTATIN (SIMVASTATIN) [Concomitant]
  3. LEVOTHYROXINE (LEVOTHYROXINE) [Concomitant]
  4. INSULIN ASPART (INSULIN ASPART) [Concomitant]
  5. ALENDRONATE (ALENDRONATE SODIUM) [Concomitant]
  6. LISINOPRIL (LISINOPRIL) [Concomitant]
  7. CYANOCOBALAMIN (CYANOCOBALAMIN) [Concomitant]
  8. PROMETHAZINE (PROMETHAZINE) [Concomitant]
  9. LORAZEPAM (LORAZEPAM) [Concomitant]
  10. HYDROCODONE/ACETAMINOPHEN (PROCET) [Concomitant]
  11. VITAMIN C [Concomitant]
  12. CALCIUM + VIT D (CALCIUM D3) [Concomitant]

REACTIONS (8)
  - Nausea [None]
  - Abdominal pain upper [None]
  - Hypophagia [None]
  - Abdominal pain [None]
  - Blood glucose increased [None]
  - Biliary colic [None]
  - Pancreatitis chronic [None]
  - Condition aggravated [None]
